FAERS Safety Report 4323801-7 (Version None)
Quarter: 2004Q1

REPORT INFORMATION
  Report Type: 
  Country: None (occurrence: None)
  Receive Date: 20040323
  Receipt Date: 20040308
  Transmission Date: 20041129
  Serious: Yes (Hospitalization)
  Sender: FDA-Public Use
  Company Number: 193817

PATIENT
  Age: 24 Month
  Sex: Female

DRUGS (1)
  1. AVONEX [Suspect]
     Indication: MULTIPLE SCLEROSIS
     Dosage: 30 MCG QW IM
     Route: 030
     Dates: start: 19980101, end: 20001201

REACTIONS (4)
  - ACUTE LYMPHOCYTIC LEUKAEMIA [None]
  - BONE PAIN [None]
  - DRUG EXPOSURE DURING PREGNANCY [None]
  - PATHOLOGICAL FRACTURE [None]
